FAERS Safety Report 7148214-4 (Version None)
Quarter: 2010Q4

REPORT INFORMATION
  Report Type: 
  Country: None (occurrence: None)
  Receive Date: 20101209
  Receipt Date: 20101129
  Transmission Date: 20110411
  Serious: Yes (Hospitalization)
  Sender: FDA-Public Use
  Company Number: PHHY2010JP81235

PATIENT
  Age: 66 Year
  Sex: Female

DRUGS (1)
  1. ZOMETA [Suspect]
     Indication: METASTASES TO BONE
     Dosage: 4 MG, QMO
     Route: 041
     Dates: start: 20080101

REACTIONS (5)
  - ORAL PAIN [None]
  - OSTEOMYELITIS [None]
  - PURULENT DISCHARGE [None]
  - SWELLING [None]
  - TOOTH LOSS [None]
